FAERS Safety Report 6811293-5 (Version None)
Quarter: 2010Q2

REPORT INFORMATION
  Report Type: 
  Country: None (occurrence: None)
  Receive Date: 20100630
  Receipt Date: 20091230
  Transmission Date: 20101027
  Serious: No
  Sender: FDA-Public Use
  Company Number: US-AMGEN-KDL383515

PATIENT
  Age: 70 Year
  Sex: Female
  Weight: 52.2 kg

DRUGS (1)
  1. PROCRIT [Suspect]
     Indication: DRUG USE FOR UNKNOWN INDICATION
     Route: 058
     Dates: start: 20090101

REACTIONS (2)
  - BURNING SENSATION [None]
  - FEELING ABNORMAL [None]
